FAERS Safety Report 18415308 (Version 1)
Quarter: 2020Q4

REPORT INFORMATION
  Report Type: Spontaneous
  Country: US (occurrence: US)
  Receive Date: 20201022
  Receipt Date: 20201022
  Transmission Date: 20210114
  Serious: Yes (Hospitalization)
  Sender: FDA-Public Use
  Company Number: None

PATIENT
  Age: 7 Year
  Sex: Female

DRUGS (2)
  1. NEUPOGEN [Suspect]
     Active Substance: FILGRASTIM
     Indication: BONE CANCER
     Route: 058
     Dates: start: 20200911
  2. NEUPOGEN [Suspect]
     Active Substance: FILGRASTIM
     Indication: EXTERNAL EAR NEOPLASM MALIGNANT
     Route: 058
     Dates: start: 20200911

REACTIONS (2)
  - White blood cell count decreased [None]
  - Pyrexia [None]

NARRATIVE: CASE EVENT DATE: 20200917
